FAERS Safety Report 17804198 (Version 4)
Quarter: 2020Q3

REPORT INFORMATION
  Report Type: Spontaneous
  Country: JP (occurrence: JP)
  Receive Date: 20200519
  Receipt Date: 20200812
  Transmission Date: 20201102
  Serious: Yes (Other)
  Sender: FDA-Public Use
  Company Number: JP-GLAXOSMITHKLINE-JP2020082929

PATIENT
  Age: 70 Year
  Sex: Male
  Weight: 63 kg

DRUGS (3)
  1. THEOPHYLLINE SUSTAINED?RELEASE TABLETS [Concomitant]
     Dosage: 100 MG, BID, AFTER BREAKFAST AND BEFORE BEDTIME
     Dates: start: 20190814
  2. CARBOCISTEINE TABLETS [Concomitant]
     Active Substance: CARBOCYSTEINE
     Dosage: 500 MG, BID, AFTER BREAKFAST AND DINNER
     Dates: start: 20190801
  3. SERETIDE [Suspect]
     Active Substance: FLUTICASONE PROPIONATE\SALMETEROL XINAFOATE
     Indication: ASTHMA
     Dosage: 500 ?G, BID
     Route: 055
     Dates: start: 20170826, end: 20200417

REACTIONS (1)
  - Fungal pharyngitis [Recovered/Resolved]

NARRATIVE: CASE EVENT DATE: 2020
